FAERS Safety Report 4404214-6 (Version None)
Quarter: 2004Q3

REPORT INFORMATION
  Report Type: 
  Country: None (occurrence: None)
  Receive Date: 20040719
  Receipt Date: 20040707
  Transmission Date: 20050211
  Serious: Yes (Hospitalization)
  Sender: FDA-Public Use
  Company Number: 6009579

PATIENT
  Age: 65 Year
  Sex: Female

DRUGS (2)
  1. BISOPROLOL-RATIOPHARM 5 (TABLETS) (BISOPROLOL FUMARATE) [Suspect]
     Indication: BLOOD PRESSURE INCREASED
     Dosage: 5 MG
     Route: 048
     Dates: start: 20030205, end: 20040409
  2. LISINOPRIL [Concomitant]

REACTIONS (3)
  - DEAFNESS UNILATERAL [None]
  - MOOD SWINGS [None]
  - WEIGHT INCREASED [None]
